FAERS Safety Report 7559148-5 (Version None)
Quarter: 2011Q2

REPORT INFORMATION
  Report Type: 
  Country: None (occurrence: None)
  Receive Date: 20110621
  Receipt Date: 20110616
  Transmission Date: 20111010
  Serious: Yes (Other)
  Sender: FDA-Public Use
  Company Number: US-PFIZER INC-2011133726

PATIENT

DRUGS (1)
  1. PROCARDIA XL [Suspect]
     Dosage: 60 MG, UNK

REACTIONS (1)
  - BRADYCARDIA [None]
